FAERS Safety Report 24548580 (Version 1)
Quarter: 2024Q4

REPORT INFORMATION
  Report Type: Other
  Country: IT (occurrence: IT)
  Receive Date: 20241025
  Receipt Date: 20241025
  Transmission Date: 20250115
  Serious: Yes (Hospitalization)
  Sender: MACLEODS
  Company Number: None

PATIENT

DRUGS (3)
  1. CLOPIDOGREL [Suspect]
     Active Substance: CLOPIDOGREL BISULFATE
     Indication: Product used for unknown indication
     Dosage: ADMINISTERED CLOPIDOGREL LOADING 600 MG
     Route: 048
     Dates: start: 202306, end: 202306
  2. ASPIRIN [Suspect]
     Active Substance: ASPIRIN
     Indication: Product used for unknown indication
     Route: 048
  3. EDOXABAN TOSYLATE [Suspect]
     Active Substance: EDOXABAN TOSYLATE
     Indication: Product used for unknown indication
     Dosage: 60 MG
     Route: 048
     Dates: start: 202306, end: 202307

REACTIONS (4)
  - Gastritis erosive [Recovered/Resolved]
  - Melaena [Recovered/Resolved]
  - Anaemia [Recovered/Resolved]
  - Haemoglobin decreased [Recovered/Resolved]

NARRATIVE: CASE EVENT DATE: 20230622
